FAERS Safety Report 16716336 (Version 1)
Quarter: 2019Q3

REPORT INFORMATION
  Report Type: Report from Study
  Country: DE (occurrence: DE)
  Receive Date: 20190819
  Receipt Date: 20190819
  Transmission Date: 20191005
  Serious: Yes (Other)
  Sender: FDA-Public Use
  Company Number: DE-BRISTOL-MYERS SQUIBB COMPANY-BMS-2019-079716

PATIENT
  Age: 50 Year
  Sex: Female
  Weight: 54 kg

DRUGS (4)
  1. IPILIMUMAB [Suspect]
     Active Substance: IPILIMUMAB
     Indication: MALIGNANT MELANOMA
     Dosage: 174 MG, Q3W
     Route: 042
     Dates: start: 20190403, end: 20190515
  2. TRAMETINIB [Suspect]
     Active Substance: TRAMETINIB
     Indication: MALIGNANT MELANOMA
     Dosage: 2 MG, QD
     Route: 065
     Dates: start: 20180228, end: 20190401
  3. TAFINLAR [Suspect]
     Active Substance: DABRAFENIB MESYLATE
     Indication: MALIGNANT MELANOMA
     Dosage: 150 MG, BID
     Route: 065
     Dates: start: 20180228, end: 20190401
  4. NIVOLUMAB [Suspect]
     Active Substance: NIVOLUMAB
     Indication: MALIGNANT MELANOMA
     Dosage: 58 MILLIGRAM, Q3WK
     Route: 065
     Dates: start: 20190403, end: 20190515

REACTIONS (7)
  - Neutropenia [Recovering/Resolving]
  - Fatigue [Not Recovered/Not Resolved]
  - Paraesthesia oral [Not Recovered/Not Resolved]
  - Peripheral swelling [Not Recovered/Not Resolved]
  - Leukopenia [Recovering/Resolving]
  - Oropharyngeal pain [Recovered/Resolved]
  - Lymphoedema [Unknown]

NARRATIVE: CASE EVENT DATE: 20180426
